FAERS Safety Report 14030307 (Version 1)
Quarter: 2017Q4

REPORT INFORMATION
  Report Type: Other
  Country: GB (occurrence: TN)
  Receive Date: 20171002
  Receipt Date: 20171002
  Transmission Date: 20180321
  Serious: Yes (Other)
  Sender: FDA-Public Use
  Company Number: TN-CLARIS PHARMASERVICES-2028499

PATIENT
  Age: 81 Year
  Sex: Male

DRUGS (4)
  1. LEVOFLOXACIN. [Suspect]
     Active Substance: LEVOFLOXACIN
     Indication: BRONCHITIS
     Route: 048
  2. FORMETEROL [Concomitant]
     Active Substance: FORMOTEROL
  3. BECLOMETHASONE [Concomitant]
     Active Substance: BECLOMETHASONE
  4. DEXTROMETHORPHANE [Concomitant]
     Route: 048

REACTIONS (1)
  - Muscle rupture [Recovered/Resolved]
